FAERS Safety Report 18398842 (Version 1)
Quarter: 2020Q4

REPORT INFORMATION
  Report Type: Spontaneous
  Country: SE (occurrence: SE)
  Receive Date: 20201019
  Receipt Date: 20201019
  Transmission Date: 20210114
  Serious: Yes (Disabling)
  Sender: FDA-Public Use
  Company Number: SE-TEVA-2020-SE-1838711

PATIENT
  Age: 82 Year
  Sex: Male

DRUGS (17)
  1. INSULIN LISPRO SANOFI [Concomitant]
  2. METFORMIN [Concomitant]
     Active Substance: METFORMIN HYDROCHLORIDE
  3. OXIS [Concomitant]
     Active Substance: FORMOTEROL FUMARATE
  4. JARDIANCE [Concomitant]
     Active Substance: EMPAGLIFLOZIN
  5. ENALAPRIL [Concomitant]
     Active Substance: ENALAPRIL
  6. BEVIPLEX FORTE [Concomitant]
  7. SIMVASTATIN. [Concomitant]
     Active Substance: SIMVASTATIN
  8. ZOPICLONE [Concomitant]
     Active Substance: ZOPICLONE
  9. ALENDRONIC ACID [Suspect]
     Active Substance: ALENDRONIC ACID
     Indication: OSTEOPOROSIS PROPHYLAXIS
     Dosage: 70 MG
     Route: 048
     Dates: start: 20180509, end: 20200911
  10. ALVEDON [Concomitant]
     Active Substance: ACETAMINOPHEN
  11. AMLODIPINE [Concomitant]
     Active Substance: AMLODIPINE BESYLATE
  12. PULMICORT TURBUHALER [Concomitant]
     Active Substance: BUDESONIDE
  13. OXASCAND [Concomitant]
     Active Substance: OXAZEPAM
  14. ALFUZOSIN [Concomitant]
     Active Substance: ALFUZOSIN
  15. BETOLVIDON [Concomitant]
     Active Substance: CYANOCOBALAMIN
  16. FOLACIN [Concomitant]
  17. PREDNISOLONE. [Suspect]
     Active Substance: PREDNISOLONE
     Indication: POLYMYALGIA RHEUMATICA
     Dosage: DOSAGE, VARIED, ^15 MG X1 SINCE FEBRUARY 2020^
     Route: 065
     Dates: start: 20180326

REACTIONS (1)
  - Osteonecrosis of jaw [Not Recovered/Not Resolved]

NARRATIVE: CASE EVENT DATE: 20200915
